FAERS Safety Report 24198062 (Version 1)
Quarter: 2024Q3

REPORT INFORMATION
  Report Type: Report from Study
  Country: KR (occurrence: KR)
  Receive Date: 20240812
  Receipt Date: 20240812
  Transmission Date: 20241017
  Serious: Yes (Hospitalization)
  Sender: AMNEAL
  Company Number: KR-AMNEAL PHARMACEUTICALS-2024-AMRX-02901

PATIENT
  Age: 78 Year
  Sex: Female

DRUGS (13)
  1. ONGENTYS [Suspect]
     Active Substance: OPICAPONE
     Indication: Parkinson^s disease
     Dosage: 50 MILLIGRAM, QD
     Route: 048
     Dates: start: 20231221
  2. PERKIN 25-100 [Concomitant]
     Indication: Parkinson^s disease
     Dosage: 2.5 DOSAGE FORM, DAILY
     Route: 048
     Dates: start: 20231115, end: 20231122
  3. PERKIN 25-100 [Concomitant]
     Dosage: 2 DOSAGE FORM, DAILY.
     Route: 048
     Dates: start: 20231123, end: 20231212
  4. PERKIN 25-100 [Concomitant]
     Dosage: 1 DOSAGE FORM, DAILY.
     Route: 048
     Dates: start: 20231130, end: 20231213
  5. PERKIN 25-100 [Concomitant]
     Dosage: .75 DOSAGE FORM, DAILY
     Route: 048
     Dates: start: 20231216
  6. PERKIN 25-100 [Concomitant]
     Dosage: .5 DOSAGE FORM, DAILY.
     Route: 048
     Dates: start: 20231213, end: 20231220
  7. PERKIN 25-100 [Concomitant]
     Dosage: 1.5 DOSAGE FORM, BID.
     Route: 048
     Dates: start: 20231214, end: 20231221
  8. PERKIN 25-100 [Concomitant]
     Dosage: .5 DOSAGE FORM, DAILY
     Route: 048
     Dates: start: 20221222, end: 20240118
  9. PERKIN 25-100 [Concomitant]
     Dosage: 2 DOSAGE FORM, BID.
     Route: 048
     Dates: start: 20231222, end: 20240118
  10. PERKIN 25-100 [Concomitant]
     Dosage: 5 DOSAGE FORM, TID.
     Route: 048
     Dates: start: 20240119
  11. PERKIN 25-100 [Concomitant]
     Dosage: 200 MILLIGRAM, DAILY.
     Route: 048
     Dates: start: 20031223
  12. MIRAPEX [Concomitant]
     Active Substance: PRAMIPEXOLE DIHYDROCHLORIDE
     Indication: Parkinson^s disease
     Dosage: 0.758 MILLIGRAM, 1 DOSAGE FORM, DAILY
     Route: 048
     Dates: start: 20240119
  13. RISELTON [RIVASTIGMINE] [Concomitant]
     Indication: Parkinson^s disease
     Dosage: 1 DOSAGE FORM, BID
     Route: 048
     Dates: start: 20240119

REACTIONS (2)
  - Headache [Recovered/Resolved]
  - Off label use [Unknown]

NARRATIVE: CASE EVENT DATE: 20231221
